FAERS Safety Report 4749424-3 (Version None)
Quarter: 2005Q3

REPORT INFORMATION
  Report Type: 
  Country: None (occurrence: None)
  Receive Date: 20050819
  Receipt Date: 20050811
  Transmission Date: 20060218
  Serious: Yes (Life-Threatening)
  Sender: FDA-Public Use
  Company Number: FI-ABBOTT-05P-055-0308458-00

PATIENT
  Sex: Female

DRUGS (1)
  1. HUMIRA [Suspect]
     Indication: DRUG USE FOR UNKNOWN INDICATION
     Route: 058
     Dates: start: 20050101

REACTIONS (4)
  - CEREBRAL INFARCTION [None]
  - DYSPHASIA [None]
  - HYPOAESTHESIA [None]
  - PARAESTHESIA [None]
